FAERS Safety Report 7145431-4 (Version None)
Quarter: 2010Q4

REPORT INFORMATION
  Report Type: 
  Country: None (occurrence: None)
  Receive Date: 20101208
  Receipt Date: 20101116
  Transmission Date: 20110411
  Serious: Yes (Other)
  Sender: FDA-Public Use
  Company Number: US-JNJFOC-20101202586

PATIENT

DRUGS (1)
  1. INVEGA [Suspect]
     Indication: ANXIETY
     Route: 048

REACTIONS (6)
  - CHOKING SENSATION [None]
  - DEPRESSION [None]
  - DROOLING [None]
  - INSOMNIA [None]
  - OFF LABEL USE [None]
  - SUICIDAL IDEATION [None]
